FAERS Safety Report 8193920-6 (Version None)
Quarter: 2012Q1

REPORT INFORMATION
  Report Type: 
  Country: None (occurrence: None)
  Receive Date: 20120308
  Receipt Date: 20120228
  Transmission Date: 20120608
  Serious: Yes (Hospitalization)
  Sender: FDA-Public Use
  Company Number: US-ELI_LILLY_AND_COMPANY-US201202008338

PATIENT
  Age: 65 Year
  Sex: Female

DRUGS (2)
  1. ALIMTA [Suspect]
     Indication: LUNG NEOPLASM MALIGNANT
     Dosage: 500 MG/M2, D21D
  2. CARBOPLATIN [Concomitant]

REACTIONS (1)
  - DYSPHAGIA [None]
